FAERS Safety Report 6496368-5 (Version None)
Quarter: 2009Q4

REPORT INFORMATION
  Report Type: 
  Country: None (occurrence: None)
  Receive Date: 20091209
  Receipt Date: 20091201
  Transmission Date: 20100525
  Serious: Yes (Other)
  Sender: FDA-Public Use
  Company Number: US024053

PATIENT
  Age: 16 Year
  Sex: Male
  Weight: 70 kg

DRUGS (9)
  1. PROVIGIL [Suspect]
     Indication: NARCOLEPSY
     Dosage: 200 MG (400 MG,1 IN 1 D),ORAL ; 400 MG (200 MG,2 IN 1 D),ORAL
     Route: 048
     Dates: start: 20080501
  2. PROVIGIL [Suspect]
     Indication: SOMNOLENCE
     Dosage: 200 MG (400 MG,1 IN 1 D),ORAL ; 400 MG (200 MG,2 IN 1 D),ORAL
     Route: 048
     Dates: start: 20080501
  3. FLUOXETINE [Suspect]
     Indication: OBSESSIVE-COMPULSIVE DISORDER
     Dosage: (40 MG),ORAL ; 60 MG (60 MG,1 IN 1 D),ORAL ; (20 MG
     Route: 048
     Dates: start: 19980101, end: 20090101
  4. FLUOXETINE [Suspect]
     Indication: TOURETTE'S DISORDER
     Dosage: (40 MG),ORAL ; 60 MG (60 MG,1 IN 1 D),ORAL ; (20 MG
     Route: 048
     Dates: start: 19980101, end: 20090101
  5. FLUOXETINE [Suspect]
     Indication: OBSESSIVE-COMPULSIVE DISORDER
     Dosage: (40 MG),ORAL ; 60 MG (60 MG,1 IN 1 D),ORAL ; (20 MG
     Route: 048
     Dates: start: 20080101
  6. FLUOXETINE [Suspect]
     Indication: TOURETTE'S DISORDER
     Dosage: (40 MG),ORAL ; 60 MG (60 MG,1 IN 1 D),ORAL ; (20 MG
     Route: 048
     Dates: start: 20080101
  7. FLUOXETINE [Suspect]
     Indication: OBSESSIVE-COMPULSIVE DISORDER
     Dosage: (40 MG),ORAL ; 60 MG (60 MG,1 IN 1 D),ORAL ; (20 MG
     Route: 048
     Dates: start: 20090101
  8. FLUOXETINE [Suspect]
     Indication: TOURETTE'S DISORDER
     Dosage: (40 MG),ORAL ; 60 MG (60 MG,1 IN 1 D),ORAL ; (20 MG
     Route: 048
     Dates: start: 20090101
  9. RISPERIDANE(RISPERIDONE) [Concomitant]

REACTIONS (5)
  - CONDITION AGGRAVATED [None]
  - DRUG INTERACTION [None]
  - OBSESSIVE-COMPULSIVE DISORDER [None]
  - THERAPEUTIC RESPONSE DECREASED [None]
  - TIC [None]
